FAERS Safety Report 5254796-X (Version None)
Quarter: 2007Q1

REPORT INFORMATION
  Report Type: 
  Country: None (occurrence: None)
  Receive Date: 20070301
  Receipt Date: 20070301
  Transmission Date: 20070707
  Serious: Yes (Life-Threatening)
  Sender: FDA-Public Use
  Company Number: None

PATIENT
  Age: 63 Year
  Sex: Female
  Weight: 68.9467 kg

DRUGS (1)
  1. IC SIMVASTATIN 40 MG TABLET TEV DON'T SEE IT [Suspect]
     Indication: BLOOD CHOLESTEROL INCREASED
     Dosage: 1 TABLET ONCE A DAY PO
     Route: 048
     Dates: start: 20070222, end: 20070227

REACTIONS (3)
  - DRY MOUTH [None]
  - DYSPHAGIA [None]
  - SWOLLEN TONGUE [None]
